FAERS Safety Report 5523138-4 (Version None)
Quarter: 2007Q4

REPORT INFORMATION
  Report Type: 
  Country: None (occurrence: None)
  Receive Date: 20071116
  Receipt Date: 20071102
  Transmission Date: 20080405
  Serious: Yes (Other)
  Sender: FDA-Public Use
  Company Number: 17806

PATIENT
  Age: 46 Year
  Sex: Male

DRUGS (2)
  1. CARBOPLATIN [Suspect]
     Indication: OVARIAN CANCER
     Dates: start: 20071003, end: 20071003
  2. GEMZAR [Suspect]
     Dates: start: 20071003, end: 20071003

REACTIONS (1)
  - ANAPHYLACTIC REACTION [None]
